FAERS Safety Report 15899892 (Version 3)
Quarter: 2019Q4

REPORT INFORMATION
  Report Type: Spontaneous
  Country: US (occurrence: US)
  Receive Date: 20190201
  Receipt Date: 20191030
  Transmission Date: 20200122
  Serious: No
  Sender: FDA-Public Use
  Company Number: US-JNJFOC-20190121294

PATIENT
  Age: 78 Year
  Sex: Male
  Weight: 93.07 kg

DRUGS (2)
  1. XARELTO [Suspect]
     Active Substance: RIVAROXABAN
     Indication: ATRIAL FIBRILLATION
     Route: 048
     Dates: start: 2016, end: 201908
  2. XARELTO [Suspect]
     Active Substance: RIVAROXABAN
     Indication: CEREBROVASCULAR ACCIDENT PROPHYLAXIS

REACTIONS (4)
  - Product dose omission [Unknown]
  - Pharyngitis [Unknown]
  - Product physical issue [Unknown]
  - Product shape issue [Unknown]

NARRATIVE: CASE EVENT DATE: 20190114
